FAERS Safety Report 5131703-1 (Version None)
Quarter: 2006Q4

REPORT INFORMATION
  Report Type: 
  Country: None (occurrence: None)
  Receive Date: 20061020
  Receipt Date: 20061016
  Transmission Date: 20070319
  Serious: Yes (Death)
  Sender: FDA-Public Use
  Company Number: DE-BOEHRINGER INGELHEIM PHARMACEUTICALS, INC.-2006-DE-05439DE

PATIENT
  Age: 75 Year
  Sex: Female
  Weight: 50 kg

DRUGS (7)
  1. SPIRIVA [Suspect]
     Indication: CHRONIC OBSTRUCTIVE PULMONARY DISEASE
     Route: 055
     Dates: start: 20060418, end: 20060511
  2. NEXIUM [Concomitant]
     Indication: GASTRIC ULCER
  3. ASPIRIN [Concomitant]
     Indication: CORONARY ARTERY DISEASE
  4. ASPIRIN [Concomitant]
     Indication: ACUTE MYOCARDIAL INFARCTION
  5. RAMIPRIL [Concomitant]
     Indication: CARDIAC FAILURE
  6. VERAHEXAL [Concomitant]
     Indication: CORONARY ARTERY DISEASE
  7. BAMBEC [Concomitant]

REACTIONS (4)
  - CHRONIC OBSTRUCTIVE PULMONARY DISEASE [None]
  - ORGAN FAILURE [None]
  - PNEUMONIA [None]
  - SEPSIS [None]
